FAERS Safety Report 24309597 (Version 1)
Quarter: 2024Q3

REPORT INFORMATION
  Report Type: Report from Study
  Country: BE (occurrence: BE)
  Receive Date: 20240912
  Receipt Date: 20240912
  Transmission Date: 20241017
  Serious: Yes (Other)
  Sender: ABBVIE
  Company Number: BE-ABBVIE-5839416

PATIENT
  Sex: Female

DRUGS (16)
  1. CARBIDOPA\LEVODOPA [Suspect]
     Active Substance: CARBIDOPA\LEVODOPA
     Indication: Parkinson^s disease
     Dosage: MD: 3.0 ML, CD: 2.2 ML/H, ED: 1.5 ML DURING 24 HOURS
     Route: 050
     Dates: start: 20240426, end: 20240530
  2. CARBIDOPA\LEVODOPA [Suspect]
     Active Substance: CARBIDOPA\LEVODOPA
     Dosage: MD: 6.0 ML, CD: 1.5 ML/H DURING 24 HOURS
     Route: 050
     Dates: start: 20240114, end: 20240426
  3. CARBIDOPA\LEVODOPA [Suspect]
     Active Substance: CARBIDOPA\LEVODOPA
     Route: 050
     Dates: start: 20200527
  4. CARBIDOPA\LEVODOPA [Suspect]
     Active Substance: CARBIDOPA\LEVODOPA
     Dosage: MD: 3.0 ML, CD: 2.8 ML/H, ED: 1.5 ML DURING 24 HOURS
     Route: 050
     Dates: start: 20240530, end: 20240530
  5. CARBIDOPA\LEVODOPA [Suspect]
     Active Substance: CARBIDOPA\LEVODOPA
     Dosage: ED: 1.5 ML, CND: 1.7 ML/H DURING 24 HOURS
     Route: 050
     Dates: start: 20240530
  6. MICARDIS [Concomitant]
     Active Substance: TELMISARTAN
     Indication: Product used for unknown indication
     Route: 065
  7. ASPIRIN [Concomitant]
     Active Substance: ASPIRIN
     Indication: Product used for unknown indication
     Dosage: FORM STRENGTH: 80 UNKNOWN
     Route: 065
  8. LORMETAZEPAM [Concomitant]
     Active Substance: LORMETAZEPAM
     Indication: Product used for unknown indication
     Route: 065
  9. Apogo pen [Concomitant]
     Indication: Product used for unknown indication
     Dosage: 1 MG - MAX 10 MG/ 24 HOURS - 20 MINUTES INTERVAL
     Route: 065
  10. BENSERAZIDE\LEVODOPA [Concomitant]
     Active Substance: BENSERAZIDE\LEVODOPA
     Indication: Product used for unknown indication
     Dosage: FORM STRENGTH: 250 UNKNOWN, FREQUENCY TEXT: 06.00, 12.00
     Route: 065
  11. BENSERAZIDE\LEVODOPA [Concomitant]
     Active Substance: BENSERAZIDE\LEVODOPA
     Indication: Product used for unknown indication
     Dosage: FORM STRENGTH: 125 UNKNOWN, FREQUENCY TEXT: SINCE DUODOPA AT 06.00 IN THE MORNING
     Route: 065
  12. BENSERAZIDE\LEVODOPA [Concomitant]
     Active Substance: BENSERAZIDE\LEVODOPA
     Indication: Product used for unknown indication
     Dosage: BEFORE DUODOPA: 0.5 TABLET IF NEEDED/ MAX 2 TABLETS/ 6H INTERVAL
     Route: 065
  13. AMANTAN [Concomitant]
     Indication: Product used for unknown indication
     Dosage: FORM STRENGTH: 100 UNKNOWN
     Route: 065
  14. Pantomed [Concomitant]
     Indication: Product used for unknown indication
     Dosage: FORM STRENGTH: 40 UNKNOWN
     Route: 065
  15. EFFEXOR [Concomitant]
     Active Substance: VENLAFAXINE HYDROCHLORIDE
     Indication: Product used for unknown indication
     Route: 065
  16. EFFEXOR [Concomitant]
     Active Substance: VENLAFAXINE HYDROCHLORIDE
     Indication: Product used for unknown indication
     Route: 065

REACTIONS (13)
  - Palliative care [Not Recovered/Not Resolved]
  - Poor quality sleep [Recovering/Resolving]
  - Vomiting [Recovered/Resolved]
  - Malaise [Recovering/Resolving]
  - Lethargy [Recovering/Resolving]
  - Gait disturbance [Unknown]
  - Depression [Not Recovered/Not Resolved]
  - Nausea [Recovered/Resolved]
  - Dyskinesia [Unknown]
  - Muscular weakness [Unknown]
  - Asthenia [Unknown]
  - Fatigue [Unknown]
  - Anxiety [Unknown]
